FAERS Safety Report 10444635 (Version 1)
Quarter: 2014Q3

REPORT INFORMATION
  Report Type: Spontaneous
  Country: JP (occurrence: JP)
  Receive Date: 20140910
  Receipt Date: 20140910
  Transmission Date: 20150326
  Serious: No
  Sender: FDA-Public Use
  Company Number: PHHY2011JP122404

PATIENT
  Sex: Male

DRUGS (4)
  1. TASIGNA [Suspect]
     Active Substance: NILOTINIB
     Indication: CHRONIC MYELOID LEUKAEMIA
     Dosage: 400 MG, DAILY
     Dates: start: 20110201
  2. TASIGNA [Suspect]
     Active Substance: NILOTINIB
     Dosage: 600 MG,
  3. TASIGNA [Suspect]
     Active Substance: NILOTINIB
     Dosage: 300 MG,
  4. TASIGNA [Suspect]
     Active Substance: NILOTINIB
     Dosage: 400 MG,
     Dates: start: 20110311

REACTIONS (2)
  - Nausea [Unknown]
  - Electrocardiogram QT prolonged [Unknown]

NARRATIVE: CASE EVENT DATE: 20110301
